FAERS Safety Report 13041151 (Version 1)
Quarter: 2016Q4

REPORT INFORMATION
  Report Type: Spontaneous
  Country: US (occurrence: US)
  Receive Date: 20161219
  Receipt Date: 20161219
  Transmission Date: 20170207
  Serious: No
  Sender: FDA-Public Use
  Company Number: US-ROCHE-1088489

PATIENT
  Age: 63 Year
  Sex: Female
  Weight: 63.6 kg

DRUGS (2)
  1. ZELBORAF [Suspect]
     Active Substance: VEMURAFENIB
     Indication: LUNG NEOPLASM MALIGNANT
     Route: 048
     Dates: start: 20120622
  2. ZELBORAF [Suspect]
     Active Substance: VEMURAFENIB
     Indication: ADENOCARCINOMA

REACTIONS (9)
  - Mass [Unknown]
  - Chest pain [Unknown]
  - Dry skin [Not Recovered/Not Resolved]
  - Nausea [Unknown]
  - Arthralgia [Unknown]
  - Rash [Recovered/Resolved with Sequelae]
  - Cough [Recovering/Resolving]
  - Dyspnoea [Recovering/Resolving]
  - Fatigue [Unknown]

NARRATIVE: CASE EVENT DATE: 20120813
